FAERS Safety Report 14170950 (Version 1)
Quarter: 2017Q4

REPORT INFORMATION
  Report Type: Spontaneous
  Country: US (occurrence: US)
  Receive Date: 20171108
  Receipt Date: 20171108
  Transmission Date: 20180321
  Serious: No
  Sender: FDA-Public Use
  Company Number: US-BAYER-2017-211448

PATIENT
  Age: 71 Year
  Sex: Female

DRUGS (3)
  1. LEVETIRACETAM. [Concomitant]
     Active Substance: LEVETIRACETAM
     Dosage: UNK
  2. CLARITIN [Suspect]
     Active Substance: LORATADINE
     Indication: RASH PRURITIC
     Dosage: 2 DF, UNK
     Dates: start: 20171031, end: 20171031
  3. CLARITIN [Suspect]
     Active Substance: LORATADINE
     Indication: RASH PRURITIC
     Dosage: 1 DF, QD
     Route: 048
     Dates: start: 201710

REACTIONS (1)
  - Extra dose administered [Recovered/Resolved]

NARRATIVE: CASE EVENT DATE: 20171031
